FAERS Safety Report 10506787 (Version 1)
Quarter: 2014Q3

REPORT INFORMATION
  Report Type: Spontaneous
  Country: US (occurrence: None)
  Receive Date: 20140915
  Receipt Date: 20140915
  Transmission Date: 20150326
  Serious: Yes (Other)
  Sender: FDA-Public Use
  Company Number: 2014-US-005335

PATIENT
  Age: 42 Year
  Sex: Female
  Weight: 46.7 kg

DRUGS (2)
  1. XYREM [Suspect]
     Active Substance: SODIUM OXYBATE
     Indication: SLEEP DISORDER
     Route: 048
     Dates: start: 200704, end: 2007
  2. TIMOLOL MALEATE (TIMOLOL MALEATE) [Concomitant]
     Active Substance: TIMOLOL

REACTIONS (3)
  - Panic attack [None]
  - Depression [None]
  - Off label use [None]

NARRATIVE: CASE EVENT DATE: 200704
